FAERS Safety Report 5242521-8 (Version None)
Quarter: 2007Q1

REPORT INFORMATION
  Report Type: 
  Country: None (occurrence: None)
  Receive Date: 20070214
  Receipt Date: 20070201
  Transmission Date: 20070707
  Serious: Yes (Other)
  Sender: FDA-Public Use
  Company Number: 010570

PATIENT
  Age: 18 Year
  Sex: Female
  Weight: 42.2 kg

DRUGS (1)
  1. PLAN B [Suspect]
     Indication: CONTRACEPTION
     Dosage: 1 TABLET, SINGLE, ORAL
     Route: 048
     Dates: start: 20070126, end: 20070126

REACTIONS (1)
  - FACIAL PALSY [None]
